FAERS Safety Report 10586704 (Version 1)
Quarter: 2014Q4

REPORT INFORMATION
  Report Type: Spontaneous
  Country: US (occurrence: None)
  Receive Date: 20141114
  Receipt Date: 20141114
  Transmission Date: 20150529
  Serious: Yes (Life-Threatening, Disabling)
  Sender: FDA-Public Use
  Company Number: None

PATIENT
  Age: 56 Year
  Sex: Male
  Weight: 77.11 kg

DRUGS (1)
  1. RESPIRIDONE RISPERIDONE 1 MG [Suspect]
     Active Substance: RISPERIDONE
     Indication: ANXIETY
     Dosage: 1 PILL  TWICE DAILY --

REACTIONS (2)
  - Sleep apnoea syndrome [None]
  - Poor quality sleep [None]
